FAERS Safety Report 16465131 (Version 1)
Quarter: 2019Q2

REPORT INFORMATION
  Report Type: Report from Study
  Country: US (occurrence: US)
  Receive Date: 20190621
  Receipt Date: 20190621
  Transmission Date: 20190711
  Serious: Yes (Hospitalization, Other)
  Sender: FDA-Public Use
  Company Number: US-TEVA-2019-US-1064671

PATIENT
  Sex: Female

DRUGS (1)
  1. COPAXONE [Suspect]
     Active Substance: GLATIRAMER ACETATE
     Dates: start: 201701, end: 201901

REACTIONS (5)
  - Pharyngeal swelling [Unknown]
  - Erythema [Unknown]
  - Swelling face [Unknown]
  - Swollen tongue [Unknown]
  - Hypersensitivity [Unknown]
